FAERS Safety Report 5122949-7 (Version None)
Quarter: 2006Q4

REPORT INFORMATION
  Report Type: 
  Country: None (occurrence: None)
  Receive Date: 20061004
  Receipt Date: 20061004
  Transmission Date: 20070319
  Serious: Yes (Death)
  Sender: FDA-Public Use
  Company Number: None

PATIENT
  Age: 19 Year
  Sex: Male
  Weight: 63.5036 kg

DRUGS (2)
  1. METHADONE 40 MG [Suspect]
     Dosage: PO [6 DOSES]
     Route: 048
     Dates: start: 20051013, end: 20051221
  2. PROZAC [Suspect]
     Indication: DEPRESSION
     Dosage: 40 MG DAILY PO
     Route: 048
     Dates: start: 20050815, end: 20051221

REACTIONS (3)
  - DRUG ABUSER [None]
  - INCORRECT DOSE ADMINISTERED [None]
  - MEDICATION ERROR [None]
